FAERS Safety Report 8370618-2 (Version None)
Quarter: 2012Q2

REPORT INFORMATION
  Report Type: 
  Country: None (occurrence: None)
  Receive Date: 20120518
  Receipt Date: 20120508
  Transmission Date: 20120825
  Serious: Yes (Other)
  Sender: FDA-Public Use
  Company Number: US-ELI_LILLY_AND_COMPANY-US201205003773

PATIENT
  Sex: Female

DRUGS (1)
  1. HUMATROPE [Suspect]
     Dosage: UNK, UNKNOWN
     Dates: start: 20110401

REACTIONS (1)
  - CEREBROVASCULAR ACCIDENT [None]
